FAERS Safety Report 8606426-4 (Version None)
Quarter: 2012Q3

REPORT INFORMATION
  Report Type: 
  Country: None (occurrence: None)
  Receive Date: 20120820
  Receipt Date: 20120806
  Transmission Date: 20120928
  Serious: Yes (Hospitalization, Other)
  Sender: FDA-Public Use
  Company Number: ZA-ROCHE-1072930

PATIENT
  Sex: Female
  Weight: 82 kg

DRUGS (40)
  1. CHOLECALCIFEROL [Concomitant]
     Dates: start: 20110304
  2. ASPIRIN [Concomitant]
  3. ERYTHROMYCIN [Concomitant]
     Route: 048
     Dates: end: 20120530
  4. ATIVAN [Concomitant]
     Dosage: 4 HRLY PRN
  5. CALCIFEROL [Concomitant]
     Dosage: '50000 U'
  6. STILPANE TABLETS [Concomitant]
     Dates: start: 20100101
  7. TRAMADOL HYDROCHLORIDE [Concomitant]
     Route: 030
  8. DORMONOCT [Concomitant]
     Route: 048
  9. CRESTOR [Concomitant]
  10. ASPIRIN [Concomitant]
     Route: 048
     Dates: start: 20120330
  11. TRAMADOL HYDROCHLORIDE/ACETAMINOPHEN [Concomitant]
     Route: 048
     Dates: end: 20120530
  12. PREDNISOLONE [Concomitant]
     Dates: start: 20110623
  13. CEFAZOLIN [Concomitant]
  14. PANTOCID [Concomitant]
     Route: 048
  15. VOLTAREN [Concomitant]
     Dosage: 12HRLY P/R X 3
     Dates: end: 20120529
  16. PICOPREP [Concomitant]
     Route: 048
  17. ASPIRIN [Concomitant]
     Route: 048
     Dates: end: 20120527
  18. ENOXAPARIN SODIUM [Concomitant]
     Route: 058
     Dates: end: 20120531
  19. POTASSIUM CHLORIDE [Concomitant]
     Dosage: 40 MMOL STAT
  20. ANDOLEX C SPRAY [Concomitant]
     Dosage: PRN
  21. SLOW-K [Concomitant]
  22. FOLIC ACID [Concomitant]
     Dates: start: 20110304
  23. BRAZEPAM [Concomitant]
     Dates: start: 20110916
  24. LEVOTHYROXINE SODIUM [Concomitant]
     Route: 048
  25. FLUOXETINE HCL [Concomitant]
     Route: 048
  26. ROACTEMRA [Suspect]
     Indication: RHEUMATOID ARTHRITIS
     Dosage: LAST DOSE PRIOR TO SAE:26/APR/2012
     Route: 042
     Dates: start: 20110304, end: 20120525
  27. NUZAK [Concomitant]
     Dates: start: 20110729
  28. CELEBREX [Concomitant]
     Dates: start: 20100101
  29. CRESTOR [Concomitant]
     Route: 048
     Dates: start: 20120526, end: 20120530
  30. ACETAMINOPHEN [Concomitant]
  31. DANTRON [Concomitant]
     Dosage: 4 MG 6 HRLY PRN
  32. LASIX [Concomitant]
  33. PREDNISONE [Concomitant]
     Route: 048
  34. SIMVASTATIN [Concomitant]
     Route: 048
  35. DORMICUM (SOUTH AFRICA) [Concomitant]
     Route: 048
  36. AMITRIPTYLINE HCL [Concomitant]
     Route: 048
     Dates: start: 20070101
  37. STOPAYNE [Concomitant]
     Dosage: 2 TABS 6-8 HRLY PM
  38. PLACEBO [Suspect]
     Indication: RHEUMATOID ARTHRITIS
     Dosage: LAST DOSE PRIR TO SAE ON 18/MAY/2012
     Route: 048
     Dates: start: 20110304, end: 20120525
  39. NUZAK [Concomitant]
     Route: 048
  40. SIMVASTATIN [Concomitant]
     Route: 048
     Dates: start: 20120531

REACTIONS (4)
  - AORTIC ARTERIOSCLEROSIS [None]
  - PERIPHERAL VASCULAR DISORDER [None]
  - AORTIC STENOSIS [None]
  - INFARCTION [None]
